FAERS Safety Report 4284583-0 (Version None)
Quarter: 2004Q1

REPORT INFORMATION
  Report Type: 
  Country: None (occurrence: None)
  Receive Date: 20040130
  Receipt Date: 20040113
  Transmission Date: 20041129
  Serious: Yes (Hospitalization)
  Sender: FDA-Public Use
  Company Number: FR_040103403

PATIENT
  Age: 60 Year
  Sex: Male

DRUGS (4)
  1. CIALIS [Suspect]
     Dosage: 10 MG/AS NEEDED
     Dates: start: 20031201, end: 20031201
  2. XATRAL (ALFUZOSIN) [Concomitant]
  3. ATORVASTATIN CALCIUM [Concomitant]
  4. OGAST (LANSOPRAZOLE) [Concomitant]

REACTIONS (1)
  - PRIAPISM [None]
